FAERS Safety Report 13340517 (Version 10)
Quarter: 2018Q4

REPORT INFORMATION
  Report Type: Report from Study
  Country: CO (occurrence: CO)
  Receive Date: 20170316
  Receipt Date: 20181128
  Transmission Date: 20190204
  Serious: Yes (Hospitalization, Other)
  Sender: FDA-Public Use
  Company Number: CO-AMGEN-COLSL2017026980

PATIENT
  Age: 38 Year
  Sex: Female

DRUGS (5)
  1. NPLATE [Suspect]
     Active Substance: ROMIPLOSTIM
     Dosage: 125 MUG, QWK
     Route: 058
     Dates: start: 20170811
  2. NPLATE [Suspect]
     Active Substance: ROMIPLOSTIM
     Dosage: 370 MUG, (EACH 15 DAYS) UNK
     Route: 058
  3. NPLATE [Suspect]
     Active Substance: ROMIPLOSTIM
     Dosage: 250 MUG, QWK
     Route: 058
  4. NPLATE [Suspect]
     Active Substance: ROMIPLOSTIM
     Dosage: 220 MUG, QWK
     Route: 058
  5. NPLATE [Suspect]
     Active Substance: ROMIPLOSTIM
     Indication: IMMUNE THROMBOCYTOPENIC PURPURA
     Dosage: 125 MUG, QWK
     Route: 058
     Dates: start: 20160907

REACTIONS (13)
  - Feeling hot [Unknown]
  - Intentional product misuse [Not Recovered/Not Resolved]
  - Headache [Unknown]
  - Thrombocytopenia [Recovering/Resolving]
  - Petechiae [Recovering/Resolving]
  - Bladder injury [Not Recovered/Not Resolved]
  - Vaginal haemorrhage [Unknown]
  - Off label use [Not Recovered/Not Resolved]
  - Vaginal prolapse [Not Recovered/Not Resolved]
  - Pain in extremity [Unknown]
  - Thrombocytosis [Not Recovered/Not Resolved]
  - Discomfort [Recovering/Resolving]
  - Abdominal pain [Unknown]

NARRATIVE: CASE EVENT DATE: 20170212
